FAERS Safety Report 13695055 (Version 1)
Quarter: 2017Q2

REPORT INFORMATION
  Report Type: Spontaneous
  Country: FR (occurrence: FR)
  Receive Date: 20170627
  Receipt Date: 20170627
  Transmission Date: 20170830
  Serious: Yes (Other)
  Sender: FDA-Public Use
  Company Number: FR-BAYER-2017-122443

PATIENT
  Age: 40 Year
  Sex: Female

DRUGS (1)
  1. MIRENA [Suspect]
     Active Substance: LEVONORGESTREL
     Dosage: 20 MCG/24HR, CONT
     Route: 015
     Dates: start: 20131213

REACTIONS (6)
  - Depression [Unknown]
  - Adnexa uteri pain [Unknown]
  - Loss of libido [Unknown]
  - Back pain [Unknown]
  - Alopecia [Unknown]
  - Aggression [Unknown]

NARRATIVE: CASE EVENT DATE: 2014
